FAERS Safety Report 19844147 (Version 1)
Quarter: 2021Q3

REPORT INFORMATION
  Report Type: Spontaneous
  Country: US (occurrence: US)
  Receive Date: 20210917
  Receipt Date: 20210917
  Transmission Date: 20211014
  Serious: Yes (Hospitalization, Other)
  Sender: FDA-Public Use
  Company Number: US-ACCORD-238246

PATIENT
  Age: 69 Year
  Sex: Male

DRUGS (2)
  1. MYCOPHENOLIC ACID. [Suspect]
     Active Substance: MYCOPHENOLIC ACID
     Indication: IMMUNOSUPPRESSION
     Dates: start: 2018
  2. TACROLIMUS. [Suspect]
     Active Substance: TACROLIMUS
     Indication: IMMUNOSUPPRESSION
     Dates: start: 2018

REACTIONS (6)
  - Transplant dysfunction [Unknown]
  - Acute kidney injury [Unknown]
  - Human herpesvirus 8 infection [Unknown]
  - Drug level increased [Unknown]
  - Hydronephrosis [Unknown]
  - Kaposi^s sarcoma [Unknown]
